FAERS Safety Report 5485172-2 (Version None)
Quarter: 2007Q4

REPORT INFORMATION
  Report Type: 
  Country: None (occurrence: None)
  Receive Date: 20071015
  Receipt Date: 20071009
  Transmission Date: 20080405
  Serious: Yes (Life-Threatening, Other)
  Sender: FDA-Public Use
  Company Number: PHBS2007NO16796

PATIENT
  Age: 49 Year
  Sex: Female

DRUGS (4)
  1. LOSARTAN POTASSIUM [Suspect]
     Indication: HYPERTENSION
     Dosage: 50 MG, UNK
  2. METFORMIN [Suspect]
     Dosage: 6 G/DAY
     Route: 048
  3. GLIBENKLAMID [Concomitant]
     Indication: DIABETES MELLITUS
  4. ESIDRIX [Suspect]
     Indication: HYPERTENSION
     Dosage: 12.5 MG, UNK

REACTIONS (15)
  - ACCIDENTAL OVERDOSE [None]
  - BLOOD LACTIC ACID INCREASED [None]
  - CIRCULATORY COLLAPSE [None]
  - DRUG INTERACTION [None]
  - DRUG TOXICITY [None]
  - GASTROENTERITIS [None]
  - HAEMODIALYSIS [None]
  - HYPERVENTILATION [None]
  - HYPOGLYCAEMIA [None]
  - HYPOTHERMIA [None]
  - LACTIC ACIDOSIS [None]
  - LOSS OF CONSCIOUSNESS [None]
  - METABOLIC ACIDOSIS [None]
  - RENAL FAILURE ACUTE [None]
  - RESPIRATORY FAILURE [None]
